FAERS Safety Report 6720059-6 (Version None)
Quarter: 2010Q2

REPORT INFORMATION
  Report Type: 
  Country: None (occurrence: None)
  Receive Date: 20100507
  Receipt Date: 20100426
  Transmission Date: 20101027
  Serious: Yes (Death)
  Sender: FDA-Public Use
  Company Number: LEO-2010-00329

PATIENT
  Age: 70 Year
  Sex: Male

DRUGS (2)
  1. INNOHEP [Suspect]
     Dosage: 4500 IU
     Dates: start: 20100209, end: 20100212
  2. LEPIRUDIN (LEPIRUDIN) [Suspect]

REACTIONS (2)
  - HEPARIN-INDUCED THROMBOCYTOPENIA [None]
  - SUBDURAL HAEMORRHAGE [None]
